FAERS Safety Report 23985172 (Version 1)
Quarter: 2024Q2

REPORT INFORMATION
  Report Type: Spontaneous
  Country: GB (occurrence: GB)
  Receive Date: 20240618
  Receipt Date: 20240618
  Transmission Date: 20240716
  Serious: Yes (Other)
  Sender: FDA-Public Use
  Company Number: GB-MHRA-EMIS-8019-2eff742a-46df-4eb9-b55e-5af07d077885

PATIENT
  Age: 81 Year
  Sex: Male
  Weight: 121 kg

DRUGS (4)
  1. MORPHINE [Suspect]
     Active Substance: MORPHINE
     Indication: Product used for unknown indication
     Dosage: TAKE 2.5-5 ML (5MG-10MG) AS NEEDED FOR PAIN UP TO FOUR TIMES A DAY
     Route: 065
     Dates: start: 20240530, end: 20240603
  2. Spikevax [Concomitant]
     Indication: Product used for unknown indication
     Dosage: 0.5 ML INTRAMUSCULAR
     Route: 065
     Dates: start: 20240424
  3. MORPHINE [Concomitant]
     Active Substance: MORPHINE
     Indication: Product used for unknown indication
     Dosage: TAKE 2.5-5 ML (5MG-10MG) AS NEEDED FOR PAIN UP TO FOUR TIMES A DAY
     Route: 065
     Dates: start: 20240530, end: 20240603
  4. HYDROXOCOBALAMIN [Concomitant]
     Active Substance: HYDROXOCOBALAMIN
     Indication: Product used for unknown indication
     Dosage: 1 EVERY 12 WEEKS
     Route: 065
     Dates: start: 20240531

REACTIONS (1)
  - Swelling face [Recovering/Resolving]

NARRATIVE: CASE EVENT DATE: 20240601
